FAERS Safety Report 4576525-5 (Version None)
Quarter: 2005Q1

REPORT INFORMATION
  Report Type: 
  Country: None (occurrence: None)
  Receive Date: 20050119
  Receipt Date: 20040426
  Transmission Date: 20050727
  Serious: Yes (Other)
  Sender: FDA-Public Use
  Company Number: A03200401296

PATIENT
  Age: 78 Year
  Sex: Male
  Weight: 77.1115 kg

DRUGS (4)
  1. PLAVIX [Suspect]
     Indication: CORONARY ARTERIAL STENT INSERTION
     Dosage: 75 MG QD - ORAL
     Route: 048
     Dates: start: 20040201
  2. PLAVIX [Suspect]
     Indication: POSTOPERATIVE CARE
     Dosage: 75 MG QD - ORAL
     Route: 048
     Dates: start: 20040201
  3. COUMADIN [Suspect]
     Indication: ATRIAL FIBRILLATION
     Dosage: ORAL
     Route: 048
  4. ASPIRIN [Suspect]
     Dosage: ORAL
     Route: 048
     Dates: end: 20040101

REACTIONS (1)
  - GASTROINTESTINAL HAEMORRHAGE [None]
